FAERS Safety Report 25714889 (Version 1)
Quarter: 2025Q3

REPORT INFORMATION
  Report Type: Spontaneous
  Country: IL (occurrence: IL)
  Receive Date: 20250822
  Receipt Date: 20250822
  Transmission Date: 20251021
  Serious: Yes (Death, Other)
  Sender: TEVA
  Company Number: IL-TEVA-VS-3363926

PATIENT
  Age: 62 Year
  Sex: Female

DRUGS (2)
  1. CARBOPLATIN [Suspect]
     Active Substance: CARBOPLATIN
     Indication: Lung carcinoma cell type unspecified recurrent
     Route: 065
     Dates: start: 20250805
  2. VINORELBINE [Suspect]
     Active Substance: VINORELBINE TARTRATE
     Indication: Lung carcinoma cell type unspecified recurrent
     Route: 065
     Dates: start: 20220805

REACTIONS (11)
  - Loss of consciousness [Fatal]
  - Unresponsive to stimuli [Fatal]
  - Paraesthesia oral [Unknown]
  - Cyanosis [Fatal]
  - Erythema [Unknown]
  - Respiratory arrest [Fatal]
  - Tonic clonic movements [Fatal]
  - Urinary incontinence [Fatal]
  - Anal incontinence [Fatal]
  - Mydriasis [Fatal]
  - Anisocoria [Fatal]

NARRATIVE: CASE EVENT DATE: 20250805
